FAERS Safety Report 14977504 (Version 3)
Quarter: 2023Q1

REPORT INFORMATION
  Report Type: Spontaneous
  Country: IT (occurrence: IT)
  Receive Date: 20180606
  Receipt Date: 20230127
  Transmission Date: 20230418
  Serious: Yes (Other)
  Sender: FDA-Public Use
  Company Number: IT-AUROBINDO-AUR-APL-2018-029099

PATIENT
  Age: 49 Year
  Sex: Male

DRUGS (3)
  1. ALPRAZOLAM [Suspect]
     Active Substance: ALPRAZOLAM
     Indication: Sedation
     Dosage: ()
     Route: 048
     Dates: start: 20180515, end: 20180515
  2. QUETIAPINE [Suspect]
     Active Substance: QUETIAPINE
     Indication: Sedation
     Dosage: ()
     Route: 048
  3. QUETIAPINE [Suspect]
     Active Substance: QUETIAPINE
     Dosage: ()
     Route: 048

REACTIONS (6)
  - Toxicity to various agents [Recovering/Resolving]
  - Loss of consciousness [Recovering/Resolving]
  - Clonus [Recovering/Resolving]
  - Drug abuse [Recovering/Resolving]
  - Alcohol abuse [Unknown]
  - Pain [Unknown]

NARRATIVE: CASE EVENT DATE: 20180315
